FAERS Safety Report 8746767 (Version 2)
Quarter: 2012Q4

REPORT INFORMATION
  Report Type: 
  Country: BR (occurrence: BR)
  Receive Date: 20120827
  Receipt Date: 20121011
  Transmission Date: 20130627
  Serious: Yes (Death, Hospitalization, Disabling)
  Sender: FDA-Public Use
  Company Number: BR-PFIZER INC-2012078404

PATIENT
  Age: 60 Year
  Sex: Male

DRUGS (3)
  1. SUTENT [Suspect]
     Indication: RENAL CANCER
     Dosage: 50 mg, 1x/day
     Route: 048
     Dates: start: 20120214, end: 20120505
  2. GARDENAL ^AVENTIS^ [Concomitant]
     Indication: EPILEPSY
     Dosage: UNK
     Dates: start: 1967
  3. TRAMAL [Concomitant]
     Dosage: 50 mg, 2x/day

REACTIONS (6)
  - Disease progression [Fatal]
  - Renal cancer [Fatal]
  - Coma [Unknown]
  - Platelet count decreased [Unknown]
  - Ageusia [Recovering/Resolving]
  - Asthenia [Unknown]
